FAERS Safety Report 21593567 (Version 3)
Quarter: 2023Q1

REPORT INFORMATION
  Report Type: Report from Study
  Country: US (occurrence: US)
  Receive Date: 20221115
  Receipt Date: 20230109
  Transmission Date: 20230418
  Serious: Yes (Other)
  Sender: FDA-Public Use
  Company Number: US-ABBVIE-4199725

PATIENT
  Age: 32 Year
  Sex: Female

DRUGS (1)
  1. HUMIRA [Suspect]
     Active Substance: ADALIMUMAB
     Indication: Rheumatoid arthritis
     Dosage: CITRATE FREE, STRENGTH 40 MILLIGRAM
     Route: 058

REACTIONS (5)
  - Knee operation [Unknown]
  - Surgery [Unknown]
  - Surgery [Unknown]
  - Pain [Unknown]
  - Cellulitis [Unknown]

NARRATIVE: CASE EVENT DATE: 20221001
